FAERS Safety Report 6108927-X (Version None)
Quarter: 2009Q1

REPORT INFORMATION
  Report Type: 
  Country: None (occurrence: None)
  Receive Date: 20090310
  Receipt Date: 20090302
  Transmission Date: 20090719
  Serious: Yes (Hospitalization)
  Sender: FDA-Public Use
  Company Number: US-ASTRAZENECA-2009UW05528

PATIENT
  Age: 48 Year
  Sex: Female

DRUGS (5)
  1. ATENOLOL [Suspect]
     Indication: HYPERTENSION
  2. REBIF [Suspect]
     Indication: MULTIPLE SCLEROSIS
     Route: 058
     Dates: start: 20081214
  3. PROZAC [Suspect]
     Indication: DEPRESSION
  4. XANAX [Suspect]
     Indication: DEPRESSION
  5. ADDERALL 10 [Concomitant]

REACTIONS (3)
  - DEPRESSION [None]
  - OVERDOSE [None]
  - PAIN [None]
